FAERS Safety Report 23854262 (Version 1)
Quarter: 2024Q2

REPORT INFORMATION
  Report Type: Spontaneous
  Country: CN (occurrence: CN)
  Receive Date: 20240514
  Receipt Date: 20240514
  Transmission Date: 20240716
  Serious: Yes (Hospitalization, Other)
  Sender: FDA-Public Use
  Company Number: CN-FreseniusKabi-FK202407461

PATIENT
  Age: 38 Year
  Sex: Female
  Weight: 42 kg

DRUGS (6)
  1. SMOFLIPID [Suspect]
     Active Substance: FISH OIL\MEDIUM-CHAIN TRIGLYCERIDES\OLIVE OIL\SOYBEAN OIL
     Indication: Nutritional supplementation
     Dosage: FORM OF ADMIN.- INJECTION
     Route: 041
     Dates: start: 20240413, end: 20240416
  2. AMINO ACIDS, SOURCE UNSPECIFIED [Suspect]
     Active Substance: AMINO ACIDS, SOURCE UNSPECIFIED
     Indication: Nutritional supplementation
     Dosage: FORM OF ADMIN.- INJECTION
     Route: 041
     Dates: start: 20240413, end: 20240416
  3. SODIUM CHLORIDE [Concomitant]
     Active Substance: SODIUM CHLORIDE
     Indication: Vehicle solution use
     Dosage: FORM OF ADMIN.- INJECTION
     Route: 041
     Dates: start: 20240413, end: 20240417
  4. SODIUM CHLORIDE [Concomitant]
     Active Substance: SODIUM CHLORIDE
     Indication: Vehicle solution use
     Dosage: FORM OF ADMIN.- INJECTION
     Route: 041
     Dates: start: 20240413, end: 20240417
  5. VITAMINS [Concomitant]
     Active Substance: VITAMINS
     Indication: Nutritional supplementation
     Dosage: FORM OF ADMIN.- INJECTION
     Route: 041
     Dates: start: 20240413, end: 20240417
  6. ESOMEPRAZOLE SODIUM [Concomitant]
     Active Substance: ESOMEPRAZOLE SODIUM
     Indication: Stress ulcer
     Dosage: FORM OF ADMIN.- INJECTION
     Route: 041
     Dates: start: 20240413, end: 20240417

REACTIONS (4)
  - Chills [Recovering/Resolving]
  - Pyrexia [Recovered/Resolved]
  - Bacteraemia [Recovering/Resolving]
  - Pneumonitis [Recovering/Resolving]

NARRATIVE: CASE EVENT DATE: 20240416
